FAERS Safety Report 23733203 (Version 1)
Quarter: 2024Q2

REPORT INFORMATION
  Report Type: Spontaneous
  Country: CA (occurrence: CA)
  Receive Date: 20240411
  Receipt Date: 20240411
  Transmission Date: 20240716
  Serious: Yes (Hospitalization)
  Sender: FDA-Public Use
  Company Number: CA-PFIZER INC-202400082032

PATIENT
  Age: 79 Year
  Sex: Female

DRUGS (5)
  1. MIDAZOLAM [Suspect]
     Active Substance: MIDAZOLAM
     Indication: Sedation
     Dosage: 10 MG TOTAL
     Route: 040
  2. MIDAZOLAM [Suspect]
     Active Substance: MIDAZOLAM
     Indication: Assisted suicide
     Dosage: 10 MG
     Route: 040
  3. LIDOCAINE [Concomitant]
     Active Substance: LIDOCAINE
     Dosage: UNK
  4. PROPOFOL [Concomitant]
     Active Substance: PROPOFOL
     Dosage: UNK
  5. ROCURONIUM [Concomitant]
     Active Substance: ROCURONIUM BROMIDE
     Dosage: UNK

REACTIONS (3)
  - Off label use [Unknown]
  - Drug ineffective for unapproved indication [Unknown]
  - Sedation complication [Unknown]
